FAERS Safety Report 9415487 (Version 1)
Quarter: 2013Q3

REPORT INFORMATION
  Report Type: Spontaneous
  Country: GB (occurrence: GB)
  Receive Date: 20130723
  Receipt Date: 20130723
  Transmission Date: 20140515
  Serious: Yes (Life-Threatening)
  Sender: FDA-Public Use
  Company Number: GB-PFIZER INC-2013212800

PATIENT
  Age: 64 Year
  Sex: Male

DRUGS (4)
  1. RAMIPRIL [Suspect]
     Indication: HYPERTENSION
     Dosage: UNK
     Route: 048
     Dates: start: 2011, end: 20130704
  2. AMLODIPINE [Concomitant]
     Indication: HYPERTENSION
     Dosage: 5 MG, UNK
     Route: 048
  3. SIMVASTATIN [Concomitant]
     Indication: BLOOD CHOLESTEROL INCREASED
     Dosage: 20 MG, UNK
     Route: 048
  4. ALLOPURINOL [Concomitant]
     Dosage: 300 MG, UNK
     Route: 048

REACTIONS (3)
  - Angioedema [Recovered/Resolved]
  - Swelling face [Recovered/Resolved]
  - Lip swelling [Recovered/Resolved]
